FAERS Safety Report 6375915-8 (Version None)
Quarter: 2009Q3

REPORT INFORMATION
  Report Type: 
  Country: None (occurrence: None)
  Receive Date: 20090917
  Receipt Date: 20090904
  Transmission Date: 20100115
  Serious: Yes (Disabling, Other)
  Sender: FDA-Public Use
  Company Number: ADR17662009

PATIENT
  Age: 64 Year
  Sex: Male

DRUGS (5)
  1. CITALOPRAM HYDROBROMIDE [Suspect]
     Indication: DEPRESSION
     Dosage: 20 MG, ORAL
     Route: 048
     Dates: start: 20061106, end: 20061219
  2. VESICARE [Concomitant]
  3. ALLOPURINOL 100MG TAB [Concomitant]
  4. ATENOLOL 20 MG [Concomitant]
  5. BENDROFLUMETHIAZIDE 2.5 MG [Concomitant]

REACTIONS (2)
  - PURPURA [None]
  - VASCULITIS [None]
